FAERS Safety Report 13289157 (Version 8)
Quarter: 2019Q3

REPORT INFORMATION
  Report Type: Spontaneous
  Country: DE (occurrence: DE)
  Receive Date: 20170302
  Receipt Date: 20190827
  Transmission Date: 20191004
  Serious: Yes (Other)
  Sender: FDA-Public Use
  Company Number: DE-AUROBINDO-AUR-APL-2017-30188

PATIENT

DRUGS (30)
  1. LORAZEPAM. [Interacting]
     Active Substance: LORAZEPAM
     Dosage: 1 MG/DAY P.R.N ()
  2. TEMOZOLOMIDE. [Interacting]
     Active Substance: TEMOZOLOMIDE
     Indication: GLIOBLASTOMA MULTIFORME
     Dosage: 50 MG/M2, UNK
     Route: 048
  3. LORAZEPAM. [Interacting]
     Active Substance: LORAZEPAM
     Indication: EPILEPSY
     Dosage: AS REQUIERD
  4. TEMOZOLOMIDE. [Interacting]
     Active Substance: TEMOZOLOMIDE
     Dosage: 150 MG/M2/D/CYCLE, 5 DAYS ON, 23 DAYS OFF FOR FIRST TWO CYCLES ()
     Route: 048
  5. LEVETIRACETAM. [Interacting]
     Active Substance: LEVETIRACETAM
     Indication: EPILEPSY
     Dosage: 2750 MILLIGRAM, ONCE A DAY
     Route: 065
  6. LORAZEPAM. [Interacting]
     Active Substance: LORAZEPAM
     Dosage: AS REQUIERD
  7. TEMOZOLOMIDE. [Interacting]
     Active Substance: TEMOZOLOMIDE
     Dosage: 200 MG/M2/D/CYCLE, 5 DAYS ON, 23 DAYS OFF FOR SUBSEQUENT CYCLES ()
  8. LORAZEPAM. [Interacting]
     Active Substance: LORAZEPAM
     Dosage: ()
  9. LORAZEPAM. [Interacting]
     Active Substance: LORAZEPAM
     Dosage: AS REQUIERD
  10. ARTESUNATE [Interacting]
     Active Substance: ARTESUNATE
     Indication: GLIOBLASTOMA MULTIFORME
     Dosage: 200 MILLIGRAM
     Dates: start: 20150920, end: 20150920
  11. ONDANSETRON [Interacting]
     Active Substance: ONDANSETRON
     Dosage: 8 MILLIGRAM
  12. LORAZEPAM. [Interacting]
     Active Substance: LORAZEPAM
     Indication: PARTIAL SEIZURES
     Dosage: 1 MG/DAY P.R.N ()
  13. LORAZEPAM. [Interacting]
     Active Substance: LORAZEPAM
     Dosage: 1 MG/DAY P.R.N ()
  14. LORAZEPAM. [Interacting]
     Active Substance: LORAZEPAM
     Dosage: AS REQUIERD
  15. TEMOZOLOMIDE. [Interacting]
     Active Substance: TEMOZOLOMIDE
     Dosage: 50 MG/M2/DAY ()
     Route: 048
  16. TEMOZOLOMIDE. [Interacting]
     Active Substance: TEMOZOLOMIDE
     Dosage: 200 MG/M2/D/CYCLE, 5 DAYS ON, 23 DAYS OFF FOR SUBSEQUENT CYCLES ()
  17. ONDANSETRON [Interacting]
     Active Substance: ONDANSETRON
     Indication: PROPHYLAXIS OF NAUSEA AND VOMITING
     Dosage: 8 MILLIGRAM, DAILY
     Route: 065
  18. LORAZEPAM. [Interacting]
     Active Substance: LORAZEPAM
     Dosage: AS REQUIERD
  19. ARTESUNATE [Interacting]
     Active Substance: ARTESUNATE
     Dosage: 200 MG, ONCE DAILY (QD)
     Route: 048
     Dates: start: 20150920, end: 20151020
  20. CLOBAZAM. [Interacting]
     Active Substance: CLOBAZAM
     Indication: EPILEPSY
     Dosage: UNK
  21. LEVETIRACETAM. [Interacting]
     Active Substance: LEVETIRACETAM
     Dosage: 1000 MG/D STARTING DOSE
     Route: 065
  22. VALPROIC ACID. [Interacting]
     Active Substance: VALPROIC ACID
     Indication: GLIOBLASTOMA MULTIFORME
     Dosage: UNK
     Route: 065
  23. LORAZEPAM. [Interacting]
     Active Substance: LORAZEPAM
     Indication: SEIZURE
     Dosage: 1 MG, AS REQUIERD
     Route: 065
  24. CLOBAZAM. [Interacting]
     Active Substance: CLOBAZAM
     Indication: SEIZURE
     Dosage: 5 MILLIGRAM, AS NECESSARY
     Route: 048
  25. TEMOZOLOMIDE. [Interacting]
     Active Substance: TEMOZOLOMIDE
     Dosage: 50 MILLIGRAM/SQ. METER
     Route: 048
  26. TEMOZOLOMIDE. [Interacting]
     Active Substance: TEMOZOLOMIDE
     Dosage: 50 MILLIGRAM/SQ. METER
     Route: 048
  27. LEVETIRACETAM. [Suspect]
     Active Substance: LEVETIRACETAM
     Indication: PARTIAL SEIZURES
     Dosage: 1000 MG, UNK
     Route: 065
  28. LORAZEPAM. [Interacting]
     Active Substance: LORAZEPAM
     Dosage: AS REQUIERD
  29. CLOBAZAM. [Interacting]
     Active Substance: CLOBAZAM
     Indication: PARTIAL SEIZURES
     Dosage: 5 MG/D P.R.N ()
  30. CLOBAZAM. [Interacting]
     Active Substance: CLOBAZAM
     Dosage: 5 MG/D P.R.N ()
     Route: 048

REACTIONS (22)
  - Depressed mood [Recovered/Resolved]
  - Dyspepsia [Recovered/Resolved]
  - Drug-induced liver injury [Recovered/Resolved]
  - Fatigue [Recovered/Resolved]
  - Monocyte count decreased [Recovered/Resolved]
  - Chest pain [Recovering/Resolving]
  - Asthenia [Recovered/Resolved]
  - Product use in unapproved indication [Unknown]
  - Aspartate aminotransferase increased [Recovered/Resolved]
  - Nausea [Recovered/Resolved]
  - Drug interaction [Recovered/Resolved]
  - Intentional product misuse [Unknown]
  - Hepatic enzyme increased [Recovered/Resolved]
  - Hepatotoxicity [Recovered/Resolved]
  - Overdose [Unknown]
  - Condition aggravated [Recovered/Resolved]
  - Weight decreased [Recovered/Resolved]
  - White blood cell count decreased [Recovered/Resolved]
  - Gamma-glutamyltransferase increased [Recovered/Resolved]
  - Leukopenia [Unknown]
  - Blood lactate dehydrogenase increased [Recovered/Resolved]
  - Alanine aminotransferase increased [Recovered/Resolved]

NARRATIVE: CASE EVENT DATE: 20150101
